FAERS Safety Report 16174806 (Version 1)
Quarter: 2019Q2

REPORT INFORMATION
  Report Type: Spontaneous
  Country: US (occurrence: US)
  Receive Date: 20190409
  Receipt Date: 20190409
  Transmission Date: 20190711
  Serious: No
  Sender: FDA-Public Use
  Company Number: US-009507513-1903USA005855

PATIENT
  Age: 70 Year
  Sex: Female

DRUGS (3)
  1. BELSOMRA [Suspect]
     Active Substance: SUVOREXANT
     Indication: INSOMNIA
     Dosage: 1 TABLET ONCE DAILY
     Route: 048
     Dates: start: 20190311
  2. GABAPENTIN. [Concomitant]
     Active Substance: GABAPENTIN
  3. ELAVIL (ALLOPURINOL) [Concomitant]
     Active Substance: ALLOPURINOL

REACTIONS (1)
  - Nightmare [Not Recovered/Not Resolved]

NARRATIVE: CASE EVENT DATE: 20190311
